FAERS Safety Report 11095013 (Version 4)
Quarter: 2015Q2

REPORT INFORMATION
  Report Type: Spontaneous
  Country: US (occurrence: US)
  Receive Date: 20150506
  Receipt Date: 20150615
  Transmission Date: 20150821
  Serious: Yes (Other)
  Sender: FDA-Public Use
  Company Number: US-GLAXOSMITHKLINE-US2015GSK061140

PATIENT
  Sex: Female

DRUGS (1)
  1. LOVAZA [Suspect]
     Active Substance: OMEGA-3-ACID ETHYL ESTERS
     Indication: PRODUCT USED FOR UNKNOWN INDICATION
     Dosage: 1 G, U
     Route: 065

REACTIONS (3)
  - Cataract operation [Unknown]
  - Intraocular lens implant [Unknown]
  - Eye operation [Unknown]
